FAERS Safety Report 9979810 (Version 1)
Quarter: 2014Q1

REPORT INFORMATION
  Report Type: Report from Study
  Country: US (occurrence: US)
  Receive Date: 20140306
  Receipt Date: 20140306
  Transmission Date: 20141002
  Serious: No
  Sender: FDA-Public Use
  Company Number: US-ABBVIE-13P-163-1174151-00

PATIENT
  Sex: Female

DRUGS (7)
  1. HUMIRA [Suspect]
     Indication: RHEUMATOID ARTHRITIS
     Dates: start: 20130924
  2. LEFLUNOMIDE [Concomitant]
     Indication: RHEUMATOID ARTHRITIS
  3. LOVASTATIN [Concomitant]
     Indication: BLOOD CHOLESTEROL
  4. AMBIEN [Concomitant]
     Indication: INSOMNIA
     Dosage: HALF TABLET
  5. ASA [Concomitant]
     Indication: SUPPLEMENTATION THERAPY
  6. FISH OIL [Concomitant]
     Indication: SUPPLEMENTATION THERAPY
  7. CO Q 10 [Concomitant]
     Indication: SUPPLEMENTATION THERAPY
     Dosage: TWO

REACTIONS (2)
  - Fatigue [Not Recovered/Not Resolved]
  - Stress [Not Recovered/Not Resolved]
